FAERS Safety Report 14044878 (Version 4)
Quarter: 2018Q1

REPORT INFORMATION
  Report Type: Spontaneous
  Country: US (occurrence: US)
  Receive Date: 20171005
  Receipt Date: 20180215
  Transmission Date: 20180508
  Serious: Yes (Death, Hospitalization)
  Sender: FDA-Public Use
  Company Number: US-RADIUS HEALTH INC.-2017US000098

PATIENT
  Age: 71 Year
  Sex: Female
  Weight: 66.21 kg

DRUGS (1)
  1. TYMLOS [Suspect]
     Active Substance: ABALOPARATIDE
     Indication: OSTEOPOROSIS POSTMENOPAUSAL
     Dosage: 80 MCG, DAILY
     Route: 058

REACTIONS (2)
  - Thrombosis [Unknown]
  - Death [Fatal]

NARRATIVE: CASE EVENT DATE: 201707
